FAERS Safety Report 9962321 (Version 1)
Quarter: 2014Q1

REPORT INFORMATION
  Report Type: Report from Study
  Country: US (occurrence: US)
  Receive Date: 20140305
  Receipt Date: 20140305
  Transmission Date: 20141002
  Serious: No
  Sender: FDA-Public Use
  Company Number: US-ABBVIE-13P-163-1116165-00

PATIENT
  Age: 42 Year
  Sex: Male

DRUGS (5)
  1. HUMIRA [Suspect]
     Indication: COLITIS ULCERATIVE
     Dates: start: 20130304
  2. FLAGYL [Concomitant]
     Indication: COLITIS ULCERATIVE
     Dosage: 500 MG DAILY AS NEEDED
  3. CIPRO [Concomitant]
     Indication: COLITIS ULCERATIVE
     Dosage: 5 MG DAILY AS NEEDED
  4. IBUPROFEN [Concomitant]
  5. BC POWDER [Concomitant]
     Indication: HEADACHE

REACTIONS (2)
  - Injection site pain [Not Recovered/Not Resolved]
  - Injection site bruising [Not Recovered/Not Resolved]
